FAERS Safety Report 9962409 (Version 1)
Quarter: 2014Q1

REPORT INFORMATION
  Report Type: Report from Study
  Country: US (occurrence: US)
  Receive Date: 20140305
  Receipt Date: 20140305
  Transmission Date: 20141002
  Serious: No
  Sender: FDA-Public Use
  Company Number: US-ABBVIE-13P-163-1116398-00

PATIENT
  Age: 55 Year
  Sex: Female
  Weight: 70.37 kg

DRUGS (3)
  1. HUMIRA [Suspect]
     Indication: RHEUMATOID ARTHRITIS
     Route: 058
     Dates: start: 20130702
  2. PREDNISONE [Concomitant]
     Indication: RHEUMATOID ARTHRITIS
  3. RELAFEN [Concomitant]
     Indication: RHEUMATOID ARTHRITIS

REACTIONS (3)
  - Rash [Not Recovered/Not Resolved]
  - Injection site reaction [Recovered/Resolved]
  - Urticaria [Recovered/Resolved]
